FAERS Safety Report 5190296-3 (Version None)
Quarter: 2006Q4

REPORT INFORMATION
  Report Type: 
  Country: None (occurrence: None)
  Receive Date: 20061222
  Receipt Date: 20061220
  Transmission Date: 20070319
  Serious: Yes (Hospitalization)
  Sender: FDA-Public Use
  Company Number: PHBS2006CH19689

PATIENT
  Age: 38 Year
  Sex: Female
  Weight: 74 kg

DRUGS (3)
  1. LOPRESSOR [Suspect]
     Dosage: 95 MG/DAY
     Route: 048
     Dates: start: 20060301, end: 20060301
  2. LOPRESSOR [Suspect]
     Dosage: 50 MG, BID
     Route: 048
     Dates: start: 20060101, end: 20061101
  3. LOPRESSOR [Suspect]
     Dosage: 100 MG, BID
     Route: 048
     Dates: start: 20061101

REACTIONS (1)
  - HAEMORRHOIDS [None]
